FAERS Safety Report 10272457 (Version 1)
Quarter: 2014Q2

REPORT INFORMATION
  Report Type: Spontaneous
  Country: US (occurrence: None)
  Receive Date: 20140627
  Receipt Date: 20140627
  Transmission Date: 20141212
  Serious: Yes (Other)
  Sender: FDA-Public Use
  Company Number: US-H14001-14-00120

PATIENT
  Age: 48 Year
  Sex: Female

DRUGS (1)
  1. LITHIUM [Suspect]
     Indication: BIPOLAR DISORDER

REACTIONS (3)
  - Nephrogenic diabetes insipidus [None]
  - Hypernatraemia [None]
  - Renal impairment [None]
